FAERS Safety Report 6982154-6 (Version None)
Quarter: 2010Q3

REPORT INFORMATION
  Report Type: 
  Country: None (occurrence: None)
  Receive Date: 20100914
  Receipt Date: 20091117
  Transmission Date: 20110219
  Serious: No
  Sender: FDA-Public Use
  Company Number: US-PFIZER INC-2009300628

PATIENT
  Sex: Male
  Weight: 81.646 kg

DRUGS (1)
  1. LYRICA [Suspect]
     Indication: MYELITIS TRANSVERSE
     Dosage: UNK
     Dates: start: 20080801

REACTIONS (2)
  - DRUG INEFFECTIVE [None]
  - RASH [None]
